FAERS Safety Report 20792910 (Version 2)
Quarter: 2022Q2

REPORT INFORMATION
  Report Type: Spontaneous
  Country: GB (occurrence: GB)
  Receive Date: 20220506
  Receipt Date: 20220623
  Transmission Date: 20220721
  Serious: Yes (Hospitalization, Other)
  Sender: FDA-Public Use
  Company Number: GB-Hikma Pharmaceuticals USA Inc.-GB-H14001-22-01189

PATIENT
  Age: 72 Year
  Sex: Female
  Weight: 62.4 kg

DRUGS (4)
  1. CARBOPLATIN [Suspect]
     Active Substance: CARBOPLATIN
     Indication: Anal cancer
     Dosage: UNKNOWN
     Route: 042
  2. RETIFANLIMAB [Suspect]
     Active Substance: RETIFANLIMAB
     Indication: Anal cancer
     Route: 065
     Dates: start: 20211216
  3. PACLITAXEL [Suspect]
     Active Substance: PACLITAXEL
     Indication: Anal cancer
     Dosage: UNKNOWN
     Route: 042
  4. LOPERAMIDE [Concomitant]
     Active Substance: LOPERAMIDE
     Indication: Product used for unknown indication
     Dosage: UNKNOWN
     Route: 065
     Dates: start: 20211222

REACTIONS (16)
  - Diarrhoea [Recovered/Resolved]
  - Condition aggravated [Recovered/Resolved]
  - Nausea [Recovering/Resolving]
  - Vomiting [Recovering/Resolving]
  - Asthenia [Unknown]
  - Dizziness [Unknown]
  - Feeling abnormal [Unknown]
  - Fibrosis [Unknown]
  - Cryptitis [Unknown]
  - Gastrointestinal toxicity [Unknown]
  - Diarrhoea haemorrhagic [Unknown]
  - Proctitis [Unknown]
  - Gastrointestinal angiectasia [Unknown]
  - Adverse event [Unknown]
  - Colitis [Unknown]
  - Infection [Unknown]

NARRATIVE: CASE EVENT DATE: 20220411
